FAERS Safety Report 10196491 (Version 1)
Quarter: 2014Q2

REPORT INFORMATION
  Report Type: Spontaneous
  Country: GB (occurrence: None)
  Receive Date: 20140522
  Receipt Date: 20140522
  Transmission Date: 20141212
  Serious: Yes (Hospitalization)
  Sender: FDA-Public Use
  Company Number: 2014-001429

PATIENT
  Age: 48 Year
  Sex: Female

DRUGS (4)
  1. SARAFEM [Suspect]
     Indication: PRODUCT USED FOR UNKNOWN INDICATION
  2. HALOPERIDOL LACTATE [Suspect]
     Indication: PRODUCT USED FOR UNKNOWN INDICATION
  3. TRIHEXYPHENIDYL HYDROCHLORIDE [Suspect]
     Indication: PRODUCT USED FOR UNKNOWN INDICATION
  4. CLOZARIL [Suspect]
     Indication: PRODUCT USED FOR UNKNOWN INDICATION
     Route: 048
     Dates: start: 20120302

REACTIONS (4)
  - Infective exacerbation of chronic obstructive airways disease [None]
  - Differential white blood cell count abnormal [None]
  - Neutrophil count increased [None]
  - Leukocytosis [None]
